FAERS Safety Report 4596386-8 (Version None)
Quarter: 2005Q1

REPORT INFORMATION
  Report Type: 
  Country: None (occurrence: None)
  Receive Date: 20050228
  Receipt Date: 20050214
  Transmission Date: 20050727
  Serious: Yes (Hospitalization)
  Sender: FDA-Public Use
  Company Number: 2005UW02373

PATIENT
  Age: 64 Year
  Sex: Male

DRUGS (4)
  1. IRESSA [Suspect]
     Dates: end: 20050201
  2. ZD1839 [Suspect]
     Dates: start: 20050217
  3. ZOLOFT [Concomitant]
  4. NORVASC [Concomitant]

REACTIONS (7)
  - DIARRHOEA [None]
  - ERYTHEMA [None]
  - INFLAMMATION [None]
  - NAUSEA [None]
  - PAIN IN EXTREMITY [None]
  - SEPSIS [None]
  - VIRAL INFECTION [None]
